FAERS Safety Report 4676622-X (Version None)
Quarter: 2005Q2

REPORT INFORMATION
  Report Type: 
  Country: None (occurrence: None)
  Receive Date: 20050527
  Receipt Date: 20050516
  Transmission Date: 20051028
  Serious: Yes (Hospitalization)
  Sender: FDA-Public Use
  Company Number: US-ROCHE-405071

PATIENT
  Age: 35 Year
  Sex: Female
  Weight: 69.4 kg

DRUGS (4)
  1. KLONOPIN [Suspect]
     Indication: PAIN
     Route: 065
     Dates: start: 20050515, end: 20050515
  2. LOVENOX [Concomitant]
     Route: 065
  3. OXYCONTIN [Concomitant]
     Route: 065
  4. VICODIN [Concomitant]

REACTIONS (2)
  - AGRANULOCYTOSIS [None]
  - NEUTROPENIA [None]
